FAERS Safety Report 19376474 (Version 1)
Quarter: 2021Q2

REPORT INFORMATION
  Report Type: Report from Study
  Country: BR (occurrence: BR)
  Receive Date: 20210604
  Receipt Date: 20210604
  Transmission Date: 20210717
  Serious: Yes (Other)
  Sender: FDA-Public Use
  Company Number: NVSC2021BR122733

PATIENT
  Sex: Female

DRUGS (8)
  1. TEGRETOL XR [Suspect]
     Active Substance: CARBAMAZEPINE
     Dosage: 4 DF, BID (4 TABLETS MORNING, 4 TABLETS NIGHT/ EVENING)
     Route: 065
  2. DIPYRONE [Concomitant]
     Active Substance: DIPYRONE
     Indication: PRODUCT USED FOR UNKNOWN INDICATION
     Dosage: UNK
     Route: 065
  3. TEGRETOL XR [Suspect]
     Active Substance: CARBAMAZEPINE
     Dosage: UNK UNK, BID (4 TABLETS IN THE MORNING AND 2 IN THE EVENING)
     Route: 065
  4. TEGRETOL XR [Suspect]
     Active Substance: CARBAMAZEPINE
     Dosage: 3 DF, BID (3 IN THE MORNING AND 3 AT NIGHT)
     Route: 065
  5. TEGRETOL XR [Suspect]
     Active Substance: CARBAMAZEPINE
     Dosage: 2 DF, BID (2 TABLETS IN THE MORNING AND 2 IN THE NIGHT)
     Route: 065
  6. TEGRETOL XR [Suspect]
     Active Substance: CARBAMAZEPINE
     Dosage: 2 DF, BID (2 PILLS IN THE MORNING AND 2 IN THE EVENING)
     Route: 065
     Dates: start: 201909
  7. TEGRETOL XR [Suspect]
     Active Substance: CARBAMAZEPINE
     Indication: PRODUCT USED FOR UNKNOWN INDICATION
     Dosage: 1 DF, BID (1 TABLET IN THE MORNING AND 1 TABLET IN THE NIGHT)
     Route: 065
     Dates: start: 2018
  8. TEGRETOL XR [Suspect]
     Active Substance: CARBAMAZEPINE
     Dosage: 2 DF, BID (2 TABLETS IN THE MORNING AND 2 IN THE NIGHT)
     Route: 065

REACTIONS (6)
  - Hypoaesthesia oral [Unknown]
  - Pain [Unknown]
  - Speech disorder [Unknown]
  - Overdose [Unknown]
  - Drug dependence [Unknown]
  - Feeding disorder [Unknown]
